FAERS Safety Report 8547573-5 (Version None)
Quarter: 2012Q3

REPORT INFORMATION
  Report Type: 
  Country: None (occurrence: None)
  Receive Date: 20120727
  Receipt Date: 20120403
  Transmission Date: 20120928
  Serious: No
  Sender: FDA-Public Use
  Company Number: US-ASTRAZENECA-2012SE22314

PATIENT
  Age: 48 Year
  Sex: Male

DRUGS (3)
  1. SYNTHROID [Concomitant]
     Dosage: INCREASED DOSE
  2. SEROQUEL XR [Suspect]
     Indication: SUICIDAL IDEATION
     Route: 048
     Dates: start: 20080101
  3. SEROQUEL XR [Suspect]
     Indication: OBSESSIVE-COMPULSIVE PERSONALITY DISORDER
     Route: 048
     Dates: start: 20080101

REACTIONS (2)
  - HYPOTHYROIDISM [None]
  - OFF LABEL USE [None]
